FAERS Safety Report 17980191 (Version 1)
Quarter: 2020Q3

REPORT INFORMATION
  Report Type: Spontaneous
  Country: GB (occurrence: GB)
  Receive Date: 20200703
  Receipt Date: 20200703
  Transmission Date: 20201103
  Serious: Yes (Disabling)
  Sender: FDA-Public Use
  Company Number: GB-PFIZER INC-2020253405

PATIENT
  Age: 40 Year
  Sex: Female
  Weight: 125 kg

DRUGS (1)
  1. PREGABALIN. [Suspect]
     Active Substance: PREGABALIN
     Indication: FIBROMYALGIA
     Dosage: 50 MG
     Route: 048
     Dates: start: 20200612, end: 20200613

REACTIONS (10)
  - Vomiting [Unknown]
  - Cough [Recovering/Resolving]
  - Rhinorrhoea [Recovering/Resolving]
  - Asthma [Unknown]
  - Nasal discharge discolouration [Unknown]
  - Illness [Recovered/Resolved]
  - Oral discharge [Unknown]
  - Wheezing [Recovering/Resolving]
  - Discharge [Recovering/Resolving]
  - Throat clearing [Recovering/Resolving]

NARRATIVE: CASE EVENT DATE: 2020
